FAERS Safety Report 19266254 (Version 1)
Quarter: 2021Q2

REPORT INFORMATION
  Report Type: Spontaneous
  Country: CN (occurrence: CN)
  Receive Date: 20210517
  Receipt Date: 20210517
  Transmission Date: 20210717
  Serious: Yes (Other)
  Sender: FDA-Public Use
  Company Number: CN-GLAXOSMITHKLINE-CN2021APC101636

PATIENT
  Age: 64 Year
  Sex: Male
  Weight: 54 kg

DRUGS (1)
  1. BENLYSTA [Suspect]
     Active Substance: BELIMUMAB
     Indication: SYSTEMIC LUPUS ERYTHEMATOSUS
     Dosage: 480 MG, QD
     Dates: start: 20210426, end: 20210426

REACTIONS (12)
  - Hypertension [Recovering/Resolving]
  - Respiratory rate increased [Recovering/Resolving]
  - Muscle twitching [Recovering/Resolving]
  - Acute coronary syndrome [Unknown]
  - Condition aggravated [Unknown]
  - Pain [Recovering/Resolving]
  - Dyspnoea [Recovering/Resolving]
  - Heart rate increased [Recovering/Resolving]
  - Drug hypersensitivity [Unknown]
  - Tachypnoea [Recovering/Resolving]
  - Musculoskeletal discomfort [Recovering/Resolving]
  - Tremor [Recovering/Resolving]

NARRATIVE: CASE EVENT DATE: 20210426
